FAERS Safety Report 13824701 (Version 3)
Quarter: 2017Q3

REPORT INFORMATION
  Report Type: Spontaneous
  Country: US (occurrence: US)
  Receive Date: 20170802
  Receipt Date: 20170811
  Transmission Date: 20171127
  Serious: No
  Sender: FDA-Public Use
  Company Number: US-TEVA-793147ACC

PATIENT
  Sex: Female

DRUGS (1)
  1. PARAGARD T 380A [Suspect]
     Active Substance: COPPER
     Indication: CONTRACEPTION
     Dates: start: 20070516, end: 20170725

REACTIONS (6)
  - Abdominal pain [Unknown]
  - Device breakage [Unknown]
  - Complication associated with device [Unknown]
  - Pelvic pain [Unknown]
  - Vaginal haemorrhage [Unknown]
  - Expired device used [Unknown]
